FAERS Safety Report 16351306 (Version 1)
Quarter: 2019Q2

REPORT INFORMATION
  Report Type: Spontaneous
  Country: DE (occurrence: DE)
  Receive Date: 20190524
  Receipt Date: 20190524
  Transmission Date: 20190711
  Serious: Yes (Other)
  Sender: FDA-Public Use
  Company Number: DE-ASTRAZENECA-2019SE74459

PATIENT
  Sex: Female

DRUGS (4)
  1. PALBOCICLIB [Suspect]
     Active Substance: PALBOCICLIB
     Route: 048
  2. XGEVA [Concomitant]
     Active Substance: DENOSUMAB
  3. AMLODIPIN [Concomitant]
     Active Substance: AMLODIPINE BESYLATE
  4. FASLODEX [Suspect]
     Active Substance: FULVESTRANT
     Route: 030
     Dates: end: 20190506

REACTIONS (1)
  - Rhabdomyolysis [Unknown]
